FAERS Safety Report 9177586 (Version 2)
Quarter: 2013Q2

REPORT INFORMATION
  Report Type: Spontaneous
  Country: US (occurrence: US)
  Receive Date: 20120531
  Receipt Date: 20130429
  Transmission Date: 20140414
  Serious: Yes (Hospitalization, Other)
  Sender: FDA-Public Use
  Company Number: US201110004936

PATIENT
  Age: 48 Year
  Sex: Male
  Weight: 152 kg

DRUGS (24)
  1. BYETTA PEN DISPOSABLE [Suspect]
     Indication: DIABETES MELLITUS
     Route: 058
  2. ADVAIR DISKUS [Concomitant]
     Dosage: 1DF:2 PUFFS
     Route: 055
  3. ALLOPURINOL [Concomitant]
  4. COZAAR [Concomitant]
  5. DICYCLOMINE [Concomitant]
  6. DIGOXIN [Concomitant]
  7. DOXAZOSIN [Concomitant]
     Route: 048
  8. FEXOFENADINE HCL [Concomitant]
  9. FOLIC ACID [Concomitant]
  10. HYZAAR [Concomitant]
     Dosage: 1DF:50/12.5 MG
  11. LANTUS [Concomitant]
     Route: 058
  12. LORTAB [Concomitant]
  13. MELOXICAM [Concomitant]
  14. METHADONE [Concomitant]
  15. METOCLOPRAMIDE [Concomitant]
  16. METOLAZONE [Concomitant]
  17. NASOCORT [Concomitant]
     Dosage: 1DF:AQ BOTH NOSTRILS
  18. PHENOBARBITAL [Concomitant]
  19. PREDNISOLONE [Concomitant]
     Route: 047
  20. PROAIR [Concomitant]
  21. PROTONIX [Concomitant]
  22. TIMOLOL [Concomitant]
     Route: 047
  23. WARFARIN [Concomitant]
  24. SODIUM CHLORIDE [Concomitant]
     Route: 047

REACTIONS (2)
  - Renal failure acute [Unknown]
  - Pancreatitis [Unknown]
